FAERS Safety Report 17672457 (Version 2)
Quarter: 2020Q2

REPORT INFORMATION
  Report Type: Report from Study
  Country: CO (occurrence: CO)
  Receive Date: 20200415
  Receipt Date: 20200504
  Transmission Date: 20200713
  Serious: Yes (Life-Threatening, Hospitalization)
  Sender: FDA-Public Use
  Company Number: NVSC2020CO100580

PATIENT
  Age: 39 Year
  Sex: Female

DRUGS (1)
  1. TASIGNA [Suspect]
     Active Substance: NILOTINIB
     Indication: CHRONIC MYELOID LEUKAEMIA
     Dosage: 300 MG, Q12H
     Route: 048
     Dates: start: 20200211, end: 202003

REACTIONS (6)
  - Platelet count decreased [Unknown]
  - Gingival bleeding [Unknown]
  - Transformation to acute myeloid leukaemia [Unknown]
  - Malaise [Unknown]
  - Disease complication [Unknown]
  - Petechiae [Unknown]

NARRATIVE: CASE EVENT DATE: 202002
